FAERS Safety Report 20224551 (Version 1)
Quarter: 2021Q4

REPORT INFORMATION
  Report Type: Spontaneous
  Country: US (occurrence: US)
  Receive Date: 20211223
  Receipt Date: 20211223
  Transmission Date: 20220303
  Serious: No
  Sender: FDA-Public Use
  Company Number: US-BEH-2021139775

PATIENT
  Age: 61 Year
  Sex: Male
  Weight: 96.75 kg

DRUGS (1)
  1. HIZENTRA [Suspect]
     Active Substance: HUMAN IMMUNOGLOBULIN G
     Indication: Hypogammaglobulinaemia
     Dosage: 12 GRAM, QW
     Route: 058

REACTIONS (10)
  - Infusion site reaction [Unknown]
  - Recalled product administered [Unknown]
  - Erythema [Unknown]
  - Recalled product administered [Unknown]
  - Pruritus [Unknown]
  - Recalled product administered [Unknown]
  - Rash [Unknown]
  - Recalled product administered [Unknown]
  - Swelling [Unknown]
  - Recalled product administered [Unknown]
